FAERS Safety Report 19740959 (Version 2)
Quarter: 2023Q1

REPORT INFORMATION
  Report Type: Spontaneous
  Country: DE (occurrence: DE)
  Receive Date: 20210824
  Receipt Date: 20230202
  Transmission Date: 20230418
  Serious: Yes (Death)
  Sender: FDA-Public Use
  Company Number: DE-NOVARTISPH-NVSC2021DE187335

PATIENT
  Age: 2 Month
  Sex: Male

DRUGS (4)
  1. TRAMETINIB [Suspect]
     Active Substance: TRAMETINIB
     Indication: Cardiac failure
     Dosage: 0.032 MG/KG, QD
     Route: 065
  2. TRAMETINIB [Suspect]
     Active Substance: TRAMETINIB
     Indication: Cardiac hypertrophy
  3. TRAMETINIB [Suspect]
     Active Substance: TRAMETINIB
     Indication: Right ventricle outflow tract obstruction
  4. PROPRANOLOL [Suspect]
     Active Substance: PROPRANOLOL HYDROCHLORIDE
     Indication: Cardiac hypertrophy
     Dosage: UNK
     Route: 065

REACTIONS (6)
  - Neonatal hypoxia [Fatal]
  - General physical health deterioration [Fatal]
  - Right-to-left cardiac shunt [Fatal]
  - Dermatitis [Unknown]
  - Product use in unapproved indication [Unknown]
  - Product use issue [Unknown]
